FAERS Safety Report 25981276 (Version 1)
Quarter: 2025Q4

REPORT INFORMATION
  Report Type: Spontaneous
  Country: US (occurrence: US)
  Receive Date: 20251030
  Receipt Date: 20251030
  Transmission Date: 20260117
  Serious: No
  Sender: ABBVIE
  Company Number: US-ABBVIE-6519762

PATIENT
  Age: 45 Year
  Sex: Female

DRUGS (2)
  1. LATISSE [Suspect]
     Active Substance: BIMATOPROST
     Indication: Growth of eyelashes
     Dosage: FIRST ADMIN DATE-2025
     Route: 061
     Dates: end: 20251020
  2. LATISSE [Suspect]
     Active Substance: BIMATOPROST
     Route: 065

REACTIONS (2)
  - Eyelash hyperpigmentation [Not Recovered/Not Resolved]
  - Therapeutic product effect decreased [Not Recovered/Not Resolved]

NARRATIVE: CASE EVENT DATE: 20250912
